FAERS Safety Report 9079345 (Version 1)
Quarter: 2013Q1

REPORT INFORMATION
  Report Type: Spontaneous
  Country: DE (occurrence: DE)
  Receive Date: 20130130
  Receipt Date: 20130130
  Transmission Date: 20140127
  Serious: Yes (Other)
  Sender: FDA-Public Use
  Company Number: DE-ROCHE-1183536

PATIENT
  Age: 56 Year
  Sex: Female

DRUGS (7)
  1. PEGASYS [Suspect]
     Indication: HEPATITIS C
     Route: 065
     Dates: start: 20120116, end: 20120704
  2. RIBAVIRIN [Suspect]
     Indication: HEPATITIS C
     Route: 065
     Dates: start: 2000
  3. RIBAVIRIN [Suspect]
     Route: 065
     Dates: start: 20120116
  4. RIBAVIRIN [Suspect]
     Route: 065
     Dates: start: 20120224
  5. RIBAVIRIN [Suspect]
     Route: 065
     Dates: start: 20120313
  6. RIBAVIRIN [Suspect]
     Route: 065
     Dates: start: 20120416, end: 20120730
  7. TELAPREVIR [Suspect]
     Indication: HEPATITIS C
     Route: 065
     Dates: start: 20120116, end: 20120416

REACTIONS (5)
  - Haemoglobin decreased [Unknown]
  - Platelet count decreased [Unknown]
  - White blood cell count decreased [Unknown]
  - Blood disorder [Not Recovered/Not Resolved]
  - No therapeutic response [Unknown]
